FAERS Safety Report 11149414 (Version 1)
Quarter: 2015Q2

REPORT INFORMATION
  Report Type: Spontaneous
  Country: US (occurrence: None)
  Receive Date: 20150528
  Receipt Date: 20150528
  Transmission Date: 20150821
  Serious: Yes (Other)
  Sender: FDA-Public Use
  Company Number: None

PATIENT
  Age: 66 Year
  Sex: Male
  Weight: 89.81 kg

DRUGS (2)
  1. BENZIAPRIL [Concomitant]
  2. ELIGARD [Suspect]
     Active Substance: LEUPROLIDE ACETATE
     Indication: PROSTATE CANCER
     Dosage: 22.5 MG  3 MONTHS GIVEN INTO/UNDER THE SKIN
     Route: 058
     Dates: start: 20150225, end: 20150527

REACTIONS (2)
  - Hot flush [None]
  - Depression [None]

NARRATIVE: CASE EVENT DATE: 20150513
